FAERS Safety Report 5014488-9 (Version None)
Quarter: 2006Q2

REPORT INFORMATION
  Report Type: 
  Country: None (occurrence: None)
  Receive Date: 20060525
  Receipt Date: 20060512
  Transmission Date: 20061013
  Serious: Yes (Hospitalization, Disabling)
  Sender: FDA-Public Use
  Company Number: 20060057837

PATIENT
  Age: 78 Year
  Sex: Female
  Weight: 83.0083 kg

DRUGS (8)
  1. CELEBREX [Suspect]
     Indication: ILL-DEFINED DISORDER
  2. BEXTRA [Suspect]
     Indication: ILL-DEFINED DISORDER
  3. BAYCOL [Concomitant]
  4. NITROGLYCERIN [Concomitant]
  5. SYNTHROID [Concomitant]
  6. LOPRESSOR [Concomitant]
  7. VIOXX [Concomitant]
  8. DYAZIDE [Concomitant]

REACTIONS (18)
  - ANGINA PECTORIS [None]
  - ARTERIOSCLEROSIS [None]
  - ARTHRITIS [None]
  - BLOOD CHOLESTEROL INCREASED [None]
  - BLOOD TRIGLYCERIDES INCREASED [None]
  - BRAIN DAMAGE [None]
  - CARDIAC DISORDER [None]
  - CEREBRAL ARTERY STENOSIS [None]
  - CEREBRAL DISORDER [None]
  - CEREBRAL INFARCTION [None]
  - CEREBRAL ISCHAEMIA [None]
  - CEREBROVASCULAR ACCIDENT [None]
  - CORONARY ARTERY DISEASE [None]
  - DRUG HYPERSENSITIVITY [None]
  - HYPERTENSION [None]
  - MYOCARDIAL INFARCTION [None]
  - RENAL DISORDER [None]
  - TRANSIENT ISCHAEMIC ATTACK [None]
